FAERS Safety Report 6159438-7 (Version None)
Quarter: 2009Q2

REPORT INFORMATION
  Report Type: 
  Country: None (occurrence: None)
  Receive Date: 20090417
  Receipt Date: 20090410
  Transmission Date: 20091009
  Serious: Yes (Hospitalization)
  Sender: FDA-Public Use
  Company Number: JP-GILEAD-2009-0021454

PATIENT
  Sex: Male

DRUGS (5)
  1. TRUVADA [Suspect]
     Indication: HIV INFECTION
     Route: 048
     Dates: start: 20060830
  2. STOCRIN [Suspect]
     Indication: HIV INFECTION
     Dates: start: 20000901
  3. RECOMBINATE [Concomitant]
     Dates: start: 20060401, end: 20070406
  4. RENIVACE [Concomitant]
     Dates: start: 20060401
  5. ADVATE [Concomitant]
     Dates: start: 20070407

REACTIONS (1)
  - VARICES OESOPHAGEAL [None]
